FAERS Safety Report 5574762-4 (Version None)
Quarter: 2007Q4

REPORT INFORMATION
  Report Type: 
  Country: None (occurrence: None)
  Receive Date: 20071227
  Receipt Date: 20071220
  Transmission Date: 20080405
  Serious: Yes (Other)
  Sender: FDA-Public Use
  Company Number: US-PURDUE-USA_2007_0030590

PATIENT
  Sex: Male

DRUGS (1)
  1. OXYCONTIN [Suspect]
     Indication: DRUG USE FOR UNKNOWN INDICATION
     Dosage: 20 MG, TID
     Route: 048

REACTIONS (9)
  - AMNESIA [None]
  - DRUG DEPENDENCE [None]
  - EUPHORIC MOOD [None]
  - FALL [None]
  - LETHARGY [None]
  - LOSS OF CONSCIOUSNESS [None]
  - POOR PERSONAL HYGIENE [None]
  - SUICIDAL IDEATION [None]
  - VOMITING [None]
